FAERS Safety Report 4633164-5 (Version None)
Quarter: 2005Q2

REPORT INFORMATION
  Report Type: 
  Country: None (occurrence: None)
  Receive Date: 20050411
  Receipt Date: 20050411
  Transmission Date: 20051028
  Serious: Yes (Hospitalization)
  Sender: FDA-Public Use
  Company Number: None

PATIENT
  Sex: Male

DRUGS (8)
  1. FLUDARABINE PHOSPHATE [Suspect]
     Dosage: 57MG  QD, IV
     Route: 042
     Dates: start: 20041228, end: 20050101
  2. MELPHLAN [Suspect]
     Indication: STEM CELL TRANSPLANT
     Dosage: 265 MG IV
     Route: 042
     Dates: start: 20050102
  3. CAMPATH [Suspect]
     Dosage: 20 MG QD IV
     Route: 042
     Dates: start: 20041228, end: 20050101
  4. PREVACID [Concomitant]
  5. ALLOPURINOL [Concomitant]
  6. MEGACE [Concomitant]
  7. NORVASC [Concomitant]
  8. CASPPOFUNGIN [Concomitant]

REACTIONS (2)
  - DEEP VEIN THROMBOSIS [None]
  - PYREXIA [None]
